FAERS Safety Report 5289105-3 (Version None)
Quarter: 2007Q1

REPORT INFORMATION
  Report Type: 
  Country: None (occurrence: None)
  Receive Date: 20070124
  Receipt Date: 20060607
  Transmission Date: 20070707
  Serious: Yes (Other)
  Sender: FDA-Public Use
  Company Number: US200605000228

PATIENT
  Age: 82 Year
  Sex: Female

DRUGS (11)
  1. FORTEO [Suspect]
     Indication: OSTEOPOROSIS
     Dates: start: 20060424, end: 20060101
  2. FORTEO [Concomitant]
  3. CARBATROL [Concomitant]
  4. CALTRATE (CALCIUM CARBONATE) [Concomitant]
  5. FOLATE SODIUM (FOLATE SODIUM) [Concomitant]
  6. B12-EHRL (CYANOCOBALAMIN) [Concomitant]
  7. PLAVIX [Concomitant]
  8. ASPIRIN [Concomitant]
  9. AVAPRO [Concomitant]
  10. OCUVITE (ASCORBIC ACID, RETINOL, TOCOPHEROL) [Concomitant]
  11. DILTIAZEM [Concomitant]

REACTIONS (5)
  - ACCIDENTAL OVERDOSE [None]
  - MEDICATION ERROR [None]
  - PRESYNCOPE [None]
  - SYNCOPE [None]
  - VOMITING [None]
